FAERS Safety Report 8059486-6 (Version None)
Quarter: 2011Q4

REPORT INFORMATION
  Report Type: 
  Country: None (occurrence: None)
  Receive Date: 20111220
  Receipt Date: 20110406
  Transmission Date: 20120403
  Serious: Yes (Other)
  Sender: FDA-Public Use
  Company Number: PHHY2010US67785

PATIENT
  Sex: Female
  Weight: 90 kg

DRUGS (4)
  1. TACROLIMUS [Concomitant]
  2. MYFORTIC [Suspect]
     Indication: HEART TRANSPLANT
     Dosage: 180 MG, BID, ORAL
     Route: 048
  3. PREDNISONE TAB [Concomitant]
  4. PRENATAL VITAMINS (ASCORBIC ACID, BIOTIN, MINERALS NOS, NICOTINI ACID, [Concomitant]

REACTIONS (3)
  - MULTIPLE PREGNANCY [None]
  - MATERNAL EXPOSURE DURING PREGNANCY [None]
  - ABORTION SPONTANEOUS [None]
